FAERS Safety Report 8114652-6 (Version None)
Quarter: 2012Q1

REPORT INFORMATION
  Report Type: 
  Country: None (occurrence: None)
  Receive Date: 20120206
  Receipt Date: 20120203
  Transmission Date: 20120608
  Serious: Yes (Other)
  Sender: FDA-Public Use
  Company Number: US-PFIZER INC-2012030695

PATIENT
  Sex: Male
  Weight: 107.48 kg

DRUGS (1)
  1. CHANTIX [Suspect]
     Indication: SMOKING CESSATION THERAPY
     Dosage: 0.5 MG, DAILY
     Dates: end: 20110101

REACTIONS (5)
  - HEADACHE [None]
  - WEIGHT DECREASED [None]
  - HYPERSENSITIVITY [None]
  - ASTHENIA [None]
  - DIZZINESS [None]
